FAERS Safety Report 9384739 (Version 1)
Quarter: 2013Q3

REPORT INFORMATION
  Report Type: Spontaneous
  Country: GB (occurrence: None)
  Receive Date: 20130701
  Receipt Date: 20130701
  Transmission Date: 20140515
  Serious: Yes (Life-Threatening)
  Sender: FDA-Public Use
  Company Number: AUR-APL-2013-05318

PATIENT
  Age: 89 Year
  Sex: Female

DRUGS (3)
  1. CLOPIDOGREL (CLOPIDOGREL) [Suspect]
     Indication: ACUTE MYOCARDIAL INFARCTION
     Route: 048
     Dates: start: 20130524, end: 20130604
  2. ASPIRIN (ACETYLSALICYLIC ACID) [Concomitant]
  3. DALTEPARIN (DALTEPARIN) [Concomitant]

REACTIONS (1)
  - Pulmonary haemorrhage [None]
